FAERS Safety Report 13164368 (Version 1)
Quarter: 2017Q1

REPORT INFORMATION
  Report Type: Spontaneous
  Country: DE (occurrence: DE)
  Receive Date: 20170130
  Receipt Date: 20170130
  Transmission Date: 20170428
  Serious: Yes (Hospitalization)
  Sender: FDA-Public Use
  Company Number: DE-SA-2017SA012584

PATIENT
  Age: 94 Year
  Sex: Male

DRUGS (6)
  1. NITRENDIPINE [Concomitant]
     Active Substance: NITRENDIPINE
  2. ATORVASTATIN [Concomitant]
     Active Substance: ATORVASTATIN
  3. RANITIDINE. [Concomitant]
     Active Substance: RANITIDINE
     Indication: PROPHYLAXIS
  4. PLAVIX [Suspect]
     Active Substance: CLOPIDOGREL BISULFATE
     Indication: STENT PLACEMENT
     Route: 065
  5. LOSARTAN. [Concomitant]
     Active Substance: LOSARTAN
  6. FINASTERIDE. [Concomitant]
     Active Substance: FINASTERIDE
     Indication: PROSTATIC ADENOMA

REACTIONS (5)
  - Cerebrovascular accident [Unknown]
  - Asthenia [Unknown]
  - Dizziness [Unknown]
  - Loss of consciousness [Unknown]
  - Cerebral thrombosis [Unknown]

NARRATIVE: CASE EVENT DATE: 201701
